FAERS Safety Report 6994353-8 (Version None)
Quarter: 2010Q3

REPORT INFORMATION
  Report Type: 
  Country: None (occurrence: None)
  Receive Date: 20100917
  Receipt Date: 20100830
  Transmission Date: 20110219
  Serious: No
  Sender: FDA-Public Use
  Company Number: US-PFIZER INC-2010109814

PATIENT
  Sex: Female

DRUGS (6)
  1. ZOLOFT [Suspect]
     Indication: DEPRESSION
     Dosage: 25 MG, UNK
     Route: 048
     Dates: start: 20080303
  2. ZOLOFT [Suspect]
     Dosage: 50 MG, 1X/DAY
     Dates: start: 20080301
  3. ZOLOFT [Suspect]
     Dosage: 100 MG, 1X/DAY
     Dates: start: 20080601
  4. ZOLOFT [Suspect]
     Dosage: 150 MG, 1X/DAY
     Dates: start: 20080901
  5. ATIVAN [Concomitant]
     Dosage: UNK
  6. EFFEXOR [Concomitant]
     Dosage: UNK

REACTIONS (1)
  - FIBROMYALGIA [None]
